FAERS Safety Report 10173428 (Version 1)
Quarter: 2014Q2

REPORT INFORMATION
  Report Type: Spontaneous
  Country: US (occurrence: US)
  Receive Date: 20140515
  Receipt Date: 20140515
  Transmission Date: 20141212
  Serious: No
  Sender: FDA-Public Use
  Company Number: US-BAUSCH-BL-2013-003318

PATIENT
  Age: 65 Year
  Sex: Female

DRUGS (11)
  1. BROMDAY 0.09% [Suspect]
     Indication: POSTOPERATIVE CARE
     Dosage: 1 DROP IN RIGHT EYE; ONCE DAILY; OPHTHALMIC
     Route: 047
     Dates: start: 20130505, end: 20130512
  2. BROMDAY 0.09% [Suspect]
     Indication: EYE INFLAMMATION
  3. LOTEPREDNOL ETABONATE [Concomitant]
     Indication: POSTOPERATIVE CARE
     Dates: start: 20130505
  4. LOTEPREDNOL ETABONATE [Concomitant]
     Indication: EYE INFLAMMATION
  5. BESIFLOXACIN HYDROCHLORIDE [Concomitant]
     Indication: POSTOPERATIVE CARE
     Dates: start: 20130505
  6. BESIFLOXACIN HYDROCHLORIDE [Concomitant]
     Indication: EYE INFLAMMATION
  7. METFORMIN [Concomitant]
     Indication: DIABETES MELLITUS
  8. ISOSORBIDE [Concomitant]
     Indication: HYPERTENSION
  9. METOPROLOL [Concomitant]
     Indication: HYPERTENSION
  10. ACETYLSALICYLIC ACID [Concomitant]
  11. SIMVASTATIN [Concomitant]
     Indication: BLOOD CHOLESTEROL INCREASED

REACTIONS (2)
  - Arthralgia [Recovering/Resolving]
  - Pain in extremity [Recovering/Resolving]
